FAERS Safety Report 25847696 (Version 1)
Quarter: 2025Q3

REPORT INFORMATION
  Report Type: Spontaneous
  Country: EU (occurrence: EU)
  Receive Date: 20250925
  Receipt Date: 20250925
  Transmission Date: 20251020
  Serious: Yes (Hospitalization)
  Sender: MYLAN
  Company Number: EU-ASTRAZENECA-202508EEA025005FR

PATIENT
  Age: 79 Year
  Sex: Male

DRUGS (4)
  1. GEMCITABINE [Suspect]
     Active Substance: GEMCITABINE
     Indication: Product used for unknown indication
  2. CISPLATIN [Suspect]
     Active Substance: CISPLATIN
     Indication: Product used for unknown indication
  3. IMFINZI [Suspect]
     Active Substance: DURVALUMAB
     Indication: Product used for unknown indication
  4. IMFINZI [Suspect]
     Active Substance: DURVALUMAB

REACTIONS (2)
  - Extravasation [Recovered/Resolved]
  - Pain [Unknown]

NARRATIVE: CASE EVENT DATE: 20250826
